FAERS Safety Report 15868541 (Version 1)
Quarter: 2019Q1

REPORT INFORMATION
  Report Type: Spontaneous
  Country: GB (occurrence: FR)
  Receive Date: 20190125
  Receipt Date: 20190125
  Transmission Date: 20190417
  Serious: Yes (Hospitalization)
  Sender: FDA-Public Use
  Company Number: FR-FRESENIUS KABI-FK201900693

PATIENT
  Age: 19 Year
  Sex: Female
  Weight: 61 kg

DRUGS (12)
  1. LIDOCAINE. [Suspect]
     Active Substance: LIDOCAINE
     Route: 042
     Dates: start: 20170310, end: 20170310
  2. SUCCINYLCHOLINE CHLORIDE. [Suspect]
     Active Substance: SUCCINYLCHOLINE CHLORIDE
     Route: 042
     Dates: start: 20170310, end: 20170310
  3. SUCCINYLCHOLINE CHLORIDE. [Suspect]
     Active Substance: SUCCINYLCHOLINE CHLORIDE
     Route: 042
     Dates: start: 20170310, end: 20170310
  4. BETAMETHASONE. [Suspect]
     Active Substance: BETAMETHASONE
     Indication: INDUCTION OF ANAESTHESIA
     Route: 042
     Dates: start: 20170310, end: 20170310
  5. PROPOFOL (MANUFACTURER UNKNOWN) [Suspect]
     Active Substance: PROPOFOL
     Route: 042
     Dates: start: 20170310, end: 20170310
  6. BETAMETHASONE. [Suspect]
     Active Substance: BETAMETHASONE
     Route: 042
     Dates: start: 20170310, end: 20170310
  7. LIDOCAINE. [Suspect]
     Active Substance: LIDOCAINE
     Indication: INDUCTION OF ANAESTHESIA
     Route: 042
     Dates: start: 20170310, end: 20170310
  8. PROPOFOL (MANUFACTURER UNKNOWN) [Suspect]
     Active Substance: PROPOFOL
     Route: 042
     Dates: start: 20170310, end: 20170310
  9. BETAMETHASONE. [Suspect]
     Active Substance: BETAMETHASONE
     Route: 042
     Dates: start: 20170310, end: 20170310
  10. PROPOFOL (MANUFACTURER UNKNOWN) [Suspect]
     Active Substance: PROPOFOL
     Indication: INDUCTION OF ANAESTHESIA
     Route: 042
     Dates: start: 20170310, end: 20170310
  11. LIDOCAINE. [Suspect]
     Active Substance: LIDOCAINE
     Route: 042
     Dates: start: 20170310, end: 20170310
  12. SUCCINYLCHOLINE CHLORIDE. [Suspect]
     Active Substance: SUCCINYLCHOLINE CHLORIDE
     Indication: INDUCTION OF ANAESTHESIA
     Route: 042
     Dates: start: 20170310, end: 20170310

REACTIONS (1)
  - Anaphylactic shock [Recovered/Resolved]

NARRATIVE: CASE EVENT DATE: 20170310
